FAERS Safety Report 9423173 (Version 3)
Quarter: 2015Q1

REPORT INFORMATION
  Report Type: Report from Study
  Country: US (occurrence: US)
  Receive Date: 20130726
  Receipt Date: 20150317
  Transmission Date: 20150721
  Serious: Yes (Hospitalization)
  Sender: FDA-Public Use
  Company Number: PHEH2013US015720

PATIENT
  Age: 8 Year
  Sex: Male

DRUGS (1)
  1. AFINITOR [Suspect]
     Active Substance: EVEROLIMUS
     Indication: ANGIOMYOLIPOMA
     Dosage: 10 MG, QD
     Route: 048
     Dates: start: 20120404, end: 20130719

REACTIONS (8)
  - Lymphadenopathy [Unknown]
  - Headache [Unknown]
  - Mycoplasma infection [Unknown]
  - Sinusitis [Unknown]
  - Pallor [Unknown]
  - Pyrexia [Unknown]
  - Dizziness [Unknown]
  - Blood sodium decreased [Unknown]

NARRATIVE: CASE EVENT DATE: 20130718
